FAERS Safety Report 14319437 (Version 1)
Quarter: 2017Q4

REPORT INFORMATION
  Report Type: Spontaneous
  Country: US (occurrence: US)
  Receive Date: 20171222
  Receipt Date: 20171222
  Transmission Date: 20180321
  Serious: Yes (Hospitalization, Other)
  Sender: FDA-Public Use
  Company Number: US-NOVAST LABORATORIES, LTD-US-2017NOV000084

PATIENT
  Age: 17 Year
  Sex: Female

DRUGS (2)
  1. CARISOPRODOL\ASPIRIN [Suspect]
     Active Substance: ASPIRIN\CARISOPRODOL
     Indication: KAWASAKI^S DISEASE
     Dosage: UNK
  2. WARFARIN [Suspect]
     Active Substance: WARFARIN
     Indication: KAWASAKI^S DISEASE
     Dosage: UNK

REACTIONS (5)
  - Cardiomegaly [Unknown]
  - Coronary artery thrombosis [Unknown]
  - Anaemia [Unknown]
  - Pericardial effusion [Unknown]
  - Pericardial haemorrhage [Unknown]
